FAERS Safety Report 8002942-7 (Version None)
Quarter: 2011Q4

REPORT INFORMATION
  Report Type: 
  Country: None (occurrence: None)
  Receive Date: 20111222
  Receipt Date: 20110408
  Transmission Date: 20120403
  Serious: No
  Sender: FDA-Public Use
  Company Number: US-GLAXOSMITHKLINE-A0922085A

PATIENT
  Age: 72 Year
  Sex: Male

DRUGS (3)
  1. DOXAZOSIN MESYLATE [Concomitant]
  2. AVODART [Suspect]
     Indication: BENIGN PROSTATIC HYPERPLASIA
     Dosage: 1CAP PER DAY
     Route: 048
     Dates: start: 20110301, end: 20110401
  3. LABETALOL HCL [Concomitant]

REACTIONS (3)
  - GASTROINTESTINAL DISORDER [None]
  - ABDOMINAL DISCOMFORT [None]
  - FLATULENCE [None]
